FAERS Safety Report 20201917 (Version 1)
Quarter: 2021Q4

REPORT INFORMATION
  Report Type: Other
  Country: DE (occurrence: None)
  Receive Date: 20211217
  Receipt Date: 20211217
  Transmission Date: 20220303
  Serious: No
  Sender: FDA-Public Use
  Company Number: DE-ROCHE-2979951

PATIENT
  Age: 24 Year
  Sex: Female

DRUGS (5)
  1. OCREVUS [Suspect]
     Active Substance: OCRELIZUMAB
     Indication: Relapsing-remitting multiple sclerosis
     Route: 042
  2. OCREVUS [Suspect]
     Active Substance: OCRELIZUMAB
     Dosage: FIRST MAINTENANCE DOSE
     Route: 042
  3. OCREVUS [Suspect]
     Active Substance: OCRELIZUMAB
     Dosage: SECOND MAINTENANCE DOSE
     Route: 042
  4. OCREVUS [Suspect]
     Active Substance: OCRELIZUMAB
     Dosage: THIRD MAINTENANCE DOSE
     Route: 042
     Dates: start: 20190617
  5. COMIRNATY [Suspect]
     Active Substance: TOZINAMERAN
     Indication: COVID-19 prophylaxis
     Dosage: FIRST VACCINE
     Route: 065
     Dates: start: 20210820

REACTIONS (1)
  - COVID-19 [Recovered/Resolved]

NARRATIVE: CASE EVENT DATE: 20211102
